FAERS Safety Report 5014660-8 (Version None)
Quarter: 2006Q2

REPORT INFORMATION
  Report Type: 
  Country: None (occurrence: None)
  Receive Date: 20060531
  Receipt Date: 20060522
  Transmission Date: 20061013
  Serious: Yes (Other)
  Sender: FDA-Public Use
  Company Number: US-MERCK-0605USA04183

PATIENT
  Age: 41 Year
  Sex: Male

DRUGS (4)
  1. INVANZ [Suspect]
     Indication: DIVERTICULITIS
     Route: 042
     Dates: start: 20060202, end: 20060212
  2. INVANZ [Suspect]
     Indication: ABSCESS
     Route: 042
     Dates: start: 20060202, end: 20060212
  3. NEXIUM [Concomitant]
     Route: 065
  4. LORTAB [Concomitant]
     Route: 065

REACTIONS (2)
  - INFLUENZA LIKE ILLNESS [None]
  - PYREXIA [None]
